FAERS Safety Report 25046995 (Version 6)
Quarter: 2025Q4

REPORT INFORMATION
  Report Type: Report from Study
  Country: US (occurrence: US)
  Receive Date: 20250306
  Receipt Date: 20251224
  Transmission Date: 20260117
  Serious: Yes (Other)
  Sender: ABBVIE
  Company Number: US-ABBVIE-6158276

PATIENT
  Age: 77 Year
  Sex: Female
  Weight: 47 kg

DRUGS (7)
  1. SKYRIZI [Suspect]
     Active Substance: RISANKIZUMAB-RZAA
     Indication: Psoriasis
     Dosage: FORM STRENGTH: 150 MILLIGRAM/SOLUTION FOR INJECTION IN PRE-FILLED PEN
     Route: 058
     Dates: start: 20250131, end: 20250131
  2. SKYRIZI [Suspect]
     Active Substance: RISANKIZUMAB-RZAA
     Dosage: TIME INTERVAL: TOTAL: FORM STRENGTH: 150 MILLIGRAM, SECOND SHOT/ SOLUTION FOR INJECTION IN PRE-FI...
     Route: 058
     Dates: start: 20250227, end: 20250227
  3. SKYRIZI [Suspect]
     Active Substance: RISANKIZUMAB-RZAA
     Dosage: TIME INTERVAL: TOTAL: FORM STRENGTH: 150 MILLIGRAM, THIRD SHOT/ SOLUTION FOR INJECTION IN PRE-FIL...
     Route: 058
     Dates: start: 20250527, end: 20250527
  4. SKYRIZI [Suspect]
     Active Substance: RISANKIZUMAB-RZAA
     Dosage: TIME INTERVAL: TOTAL: FORM STRENGTH: 150 MILLIGRAM, FOURTH SHOT/ SOLUTION FOR INJECTION IN PRE-FI...
     Route: 058
     Dates: start: 20250827
  5. COLESTIPOL [Concomitant]
     Active Substance: COLESTIPOL
     Indication: Gastrointestinal motility disorder
     Dosage: TWO A DAY
  6. COLESTIPOL [Concomitant]
     Active Substance: COLESTIPOL
     Indication: Gastrointestinal motility disorder
     Dosage: TWO A DAY FORM STRENGTH: 1G
  7. TRIAMCINOLONE ACETONIDE [Concomitant]
     Active Substance: TRIAMCINOLONE ACETONIDE
     Indication: Product used for unknown indication

REACTIONS (15)
  - Pulmonary oedema [Unknown]
  - Peripheral swelling [Recovered/Resolved]
  - Pulmonary oedema [Recovered/Resolved]
  - Dyspnoea [Unknown]
  - Fatigue [Not Recovered/Not Resolved]
  - Temperature intolerance [Unknown]
  - Asthenia [Unknown]
  - Therapeutic product effect incomplete [Unknown]
  - Unevaluable event [Not Recovered/Not Resolved]
  - Dehydration [Unknown]
  - Pollakiuria [Unknown]
  - Weight decreased [Unknown]
  - Musculoskeletal stiffness [Unknown]
  - Feeling abnormal [Unknown]
  - Peripheral swelling [Recovered/Resolved]

NARRATIVE: CASE EVENT DATE: 20250101
